FAERS Safety Report 20161009 (Version 1)
Quarter: 2021Q4

REPORT INFORMATION
  Report Type: Spontaneous
  Country: US (occurrence: None)
  Receive Date: 20211207
  Receipt Date: 20211207
  Transmission Date: 20220303
  Serious: Yes (Disabling)
  Sender: FDA-Public Use
  Company Number: None

PATIENT
  Age: 77 Year
  Sex: Male
  Weight: 78.75 kg

DRUGS (2)
  1. ALPRAZOLAM [Suspect]
     Active Substance: ALPRAZOLAM
     Indication: Insomnia
     Dosage: FREQUENCY : AT BEDTIME;?
     Route: 048
     Dates: start: 20211006, end: 20211009
  2. LEVOTHYROXINE [Concomitant]
     Active Substance: LEVOTHYROXINE

REACTIONS (4)
  - Therapy non-responder [None]
  - Sleep disorder [None]
  - Product substitution issue [None]
  - Suspected product quality issue [None]

NARRATIVE: CASE EVENT DATE: 20211006
